FAERS Safety Report 5880518-5 (Version None)
Quarter: 2008Q3

REPORT INFORMATION
  Report Type: 
  Country: None (occurrence: None)
  Receive Date: 20080912
  Receipt Date: 20080902
  Transmission Date: 20090109
  Serious: Yes (Congenital Anomaly)
  Sender: FDA-Public Use
  Company Number: FR-ELI_LILLY_AND_COMPANY-FR200809000237

PATIENT
  Weight: 3.62 kg

DRUGS (2)
  1. PROZAC [Suspect]
     Dosage: 20 MG, DAILY (1/D)
     Route: 064
  2. DEPAMIDE [Concomitant]
     Dosage: 1 TABLET FOR 2 DAYS
     Route: 064
     Dates: start: 20070101, end: 20070101

REACTIONS (2)
  - DRUG EXPOSURE DURING PREGNANCY [None]
  - PULMONARY VALVE STENOSIS CONGENITAL [None]
